FAERS Safety Report 4340597-3 (Version None)
Quarter: 2004Q2

REPORT INFORMATION
  Report Type: 
  Country: None (occurrence: None)
  Receive Date: 20040416
  Receipt Date: 20040416
  Transmission Date: 20050107
  Serious: Yes (Other)
  Sender: FDA-Public Use
  Company Number: None

PATIENT
  Age: 73 Year
  Sex: Female
  Weight: 89.8122 kg

DRUGS (1)
  1. ELOXATIN [Suspect]
     Indication: RECTAL CANCER
     Dosage: 260 MG Q 3 WEEKS
     Dates: start: 20040302, end: 20040323

REACTIONS (4)
  - DISCOMFORT [None]
  - INFUSION RELATED REACTION [None]
  - PARAESTHESIA [None]
  - TENDERNESS [None]
